FAERS Safety Report 24282550 (Version 1)
Quarter: 2024Q3

REPORT INFORMATION
  Report Type: Spontaneous
  Country: US (occurrence: US)
  Receive Date: 20240904
  Receipt Date: 20240904
  Transmission Date: 20241017
  Serious: No
  Sender: JOHNSON AND JOHNSON
  Company Number: US-JNJFOC-20240823244

PATIENT
  Age: 79 Year
  Sex: Male

DRUGS (5)
  1. IMODIUM [Suspect]
     Active Substance: LOPERAMIDE HYDROCHLORIDE
     Indication: Diarrhoea
     Route: 065
     Dates: start: 2024
  2. OFEV [Concomitant]
     Active Substance: NINTEDANIB
     Indication: Idiopathic pulmonary fibrosis
     Dosage: 300 MG
     Route: 048
     Dates: start: 202401, end: 2024
  3. OFEV [Concomitant]
     Active Substance: NINTEDANIB
     Dosage: 100 MG 1 IN 1 DAY
     Route: 048
     Dates: start: 2024, end: 2024
  4. PIRFENIDONE [Concomitant]
     Active Substance: PIRFENIDONE
     Indication: Product used for unknown indication
     Route: 065
  5. MILK OF MAGNESIA [Concomitant]
     Active Substance: MAGNESIUM HYDROXIDE
     Indication: Diarrhoea
     Route: 065
     Dates: start: 2024

REACTIONS (1)
  - Constipation [Recovered/Resolved]

NARRATIVE: CASE EVENT DATE: 20240101
